FAERS Safety Report 8824613 (Version 5)
Quarter: 2014Q4

REPORT INFORMATION
  Report Type: Report from Study
  Country: CA (occurrence: CA)
  Receive Date: 20121004
  Receipt Date: 20141126
  Transmission Date: 20150529
  Serious: Yes (Hospitalization, Other)
  Sender: FDA-Public Use
  Company Number: PHHY2012CA053598

PATIENT
  Sex: Male

DRUGS (8)
  1. EXJADE [Suspect]
     Active Substance: DEFERASIROX
     Indication: HAEMOLYTIC ANAEMIA
     Dosage: 1000 MG, QD
     Route: 048
     Dates: start: 201007, end: 201209
  2. EXJADE [Suspect]
     Active Substance: DEFERASIROX
     Dosage: 1500 MG, QD
     Route: 048
  3. VITAMIN D [Concomitant]
     Active Substance: CHOLECALCIFEROL
     Dosage: 2000 IU, BID
     Route: 048
  4. CALTRATE [Concomitant]
     Active Substance: CALCIUM CARBONATE
     Dosage: 1300 MG, QD
     Route: 048
  5. EXJADE [Suspect]
     Active Substance: DEFERASIROX
     Indication: OFF LABEL USE
     Dosage: 1500 MG, QD
     Route: 048
     Dates: end: 20121115
  6. EXJADE [Suspect]
     Active Substance: DEFERASIROX
     Dosage: 1500 MG OR 1000 MG, THREE TIMES PER WEEK
     Route: 048
  7. FOLIC ACID. [Concomitant]
     Active Substance: FOLIC ACID
     Dosage: 5 MG, QD
     Route: 048
  8. DESFERAL [Concomitant]
     Active Substance: DEFEROXAMINE MESYLATE
     Indication: IRON OVERLOAD
     Dosage: UNK
     Route: 065
     Dates: start: 20140910

REACTIONS (9)
  - Diarrhoea [Unknown]
  - Oropharyngeal pain [Unknown]
  - Abdominal discomfort [Unknown]
  - Dyspepsia [Unknown]
  - Fungal infection [Unknown]
  - Malaise [Unknown]
  - Splenomegaly [Unknown]
  - Blood count abnormal [Unknown]
  - Fatigue [Unknown]
